FAERS Safety Report 8828381 (Version 3)
Quarter: 2012Q4

REPORT INFORMATION
  Report Type: 
  Country: US (occurrence: US)
  Receive Date: 20121005
  Receipt Date: 20121112
  Transmission Date: 20130627
  Serious: No
  Sender: FDA-Public Use
  Company Number: US-BIOGENIDEC-2012BI040979

PATIENT
  Sex: Female

DRUGS (1)
  1. TYSABRI [Suspect]
     Indication: MULTIPLE SCLEROSIS
     Route: 042
     Dates: start: 20120418, end: 201208

REACTIONS (6)
  - Red blood cell count increased [Unknown]
  - Vein disorder [Recovered/Resolved]
  - White blood cell count increased [Unknown]
  - Gallbladder disorder [Recovered/Resolved]
  - Drug ineffective [Not Recovered/Not Resolved]
  - Multiple sclerosis relapse [Unknown]
